FAERS Safety Report 7365144-3 (Version None)
Quarter: 2011Q1

REPORT INFORMATION
  Report Type: 
  Country: None (occurrence: None)
  Receive Date: 20110321
  Receipt Date: 20110316
  Transmission Date: 20110831
  Serious: Yes (Other)
  Sender: FDA-Public Use
  Company Number: ES-GILEAD-2011-0036343

PATIENT
  Sex: Male
  Weight: 64 kg

DRUGS (1)
  1. ATRIPLA [Suspect]
     Indication: HIV INFECTION
     Route: 048
     Dates: start: 20110117, end: 20110208

REACTIONS (2)
  - GENERALISED ERYTHEMA [None]
  - HYPERSENSITIVITY [None]
